FAERS Safety Report 6578775-5 (Version None)
Quarter: 2010Q1

REPORT INFORMATION
  Report Type: 
  Country: None (occurrence: None)
  Receive Date: 20100202
  Receipt Date: 20100118
  Transmission Date: 20100710
  Serious: Yes (Hospitalization)
  Sender: FDA-Public Use
  Company Number: 10-005

PATIENT
  Age: 65 Year
  Sex: Female

DRUGS (2)
  1. LEVETIRACETAM [Suspect]
     Indication: CONVULSION
     Dosage: 750 MG TWICE DAILY, ORAL
     Route: 048
  2. PAROXETINE HCL [Suspect]
     Indication: DEPRESSION
     Dosage: 10 MG PER DAY, ORAL
     Route: 048

REACTIONS (11)
  - BILE CULTURE POSITIVE [None]
  - BILE DUCT STONE [None]
  - BLOOD CULTURE POSITIVE [None]
  - BONE MARROW FAILURE [None]
  - BRONCHOPNEUMONIA [None]
  - ENTEROCOCCAL INFECTION [None]
  - EPILEPSY [None]
  - LIVER ABSCESS [None]
  - MENINGIOMA [None]
  - PSEUDOMONAS INFECTION [None]
  - STAPHYLOCOCCAL INFECTION [None]
